FAERS Safety Report 6481583-7 (Version None)
Quarter: 2009Q4

REPORT INFORMATION
  Report Type: 
  Country: None (occurrence: None)
  Receive Date: 20091208
  Receipt Date: 20091130
  Transmission Date: 20100525
  Serious: Yes (Other)
  Sender: FDA-Public Use
  Company Number: US-SANOFI-AVENTIS-200919542US

PATIENT
  Age: 78 Year
  Sex: Female

DRUGS (18)
  1. FLUOROURACIL [Suspect]
     Indication: ACTINIC KERATOSIS
     Dosage: PEA-SIZE AMOUNT AT NIGHT
     Route: 061
     Dates: start: 20090720, end: 20090820
  2. SYNTHROID [Concomitant]
  3. DIGOXIN [Concomitant]
  4. POTASSIUM CHLORIDE [Concomitant]
  5. MAGNESIUM OXIDE [Concomitant]
  6. DYAZIDE [Concomitant]
     Dosage: 37.5 MG/25 MG X 1
  7. TOPROL-XL [Concomitant]
  8. DIOVANE [Concomitant]
  9. ASPIRIN [Concomitant]
  10. LIPITOR [Concomitant]
  11. STOOL SOFTENER [Concomitant]
  12. ALPRAZOLAM [Concomitant]
  13. NASONEX [Concomitant]
     Dosage: DURING SEASON
     Route: 045
  14. NITROFURANTOIN [Concomitant]
  15. MIRALAX [Concomitant]
     Dosage: 1 CAPFUL EVERY OTHER DAY
  16. COUMADIN [Concomitant]
  17. CITRACAL + D [Concomitant]
  18. VITAMIN D [Concomitant]

REACTIONS (2)
  - CORNEAL DEGENERATION [None]
  - OFF LABEL USE [None]
